FAERS Safety Report 8155517-3 (Version None)
Quarter: 2012Q1

REPORT INFORMATION
  Report Type: 
  Country: None (occurrence: None)
  Receive Date: 20120222
  Receipt Date: 20120214
  Transmission Date: 20120608
  Serious: Yes (Hospitalization)
  Sender: FDA-Public Use
  Company Number: US-BAYER-200934756NA

PATIENT
  Age: 39 Year
  Sex: Female
  Weight: 87.528 kg

DRUGS (11)
  1. YASMIN [Suspect]
     Indication: MENSTRUATION IRREGULAR
  2. VICODIN [Concomitant]
  3. PRILOSEC [Concomitant]
  4. FLEXERIL [Concomitant]
     Indication: BACK PAIN
     Route: 048
  5. ZOLOFT [Concomitant]
  6. YAZ [Suspect]
     Indication: MENSTRUATION IRREGULAR
  7. YASMIN [Suspect]
     Indication: CONTRACEPTION
     Dosage: UNK
     Route: 048
     Dates: start: 20050601, end: 20050801
  8. YAZ [Suspect]
     Indication: CONTRACEPTION
     Dosage: UNK
     Dates: start: 20080201, end: 20080401
  9. SERTRALINE HYDROCHLORIDE [Concomitant]
     Dosage: 50 MG, UNK
     Route: 048
  10. PEPCID [Concomitant]
     Route: 048
  11. NORCO [Concomitant]
     Route: 048

REACTIONS (3)
  - PORTAL VEIN THROMBOSIS [None]
  - PAIN [None]
  - ANXIETY [None]
